FAERS Safety Report 7296583-7 (Version None)
Quarter: 2011Q1

REPORT INFORMATION
  Report Type: 
  Country: None (occurrence: None)
  Receive Date: 20110216
  Receipt Date: 20110207
  Transmission Date: 20110831
  Serious: Yes (Hospitalization)
  Sender: FDA-Public Use
  Company Number: PHHO2010DE16048

PATIENT
  Sex: Female
  Weight: 71 kg

DRUGS (5)
  1. AFINITOR [Suspect]
     Indication: TUBEROUS SCLEROSIS
     Dosage: UNK
     Route: 048
     Dates: start: 20100914, end: 20101018
  2. OPIPRAMOL [Concomitant]
     Indication: DEPRESSION
  3. OLMESARTAN MEDOXOMIL [Concomitant]
     Indication: HYPERTENSION
  4. DEPO-CLINOVIR [Concomitant]
     Indication: MENORRHAGIA
  5. AFINITOR [Suspect]
     Dosage: UNK
     Dates: start: 20101109

REACTIONS (9)
  - DYSPLASIA [None]
  - GASTRITIS [None]
  - DUODENAL SPHINCTEROTOMY [None]
  - BILE DUCT STENOSIS [None]
  - CHOLESTASIS [None]
  - DISEASE PROGRESSION [None]
  - BILE DUCT STENT INSERTION [None]
  - ABDOMINAL PAIN UPPER [None]
  - FAECES DISCOLOURED [None]
